FAERS Safety Report 7040654-7 (Version None)
Quarter: 2010Q4

REPORT INFORMATION
  Report Type: 
  Country: None (occurrence: None)
  Receive Date: 20101013
  Receipt Date: 20101005
  Transmission Date: 20110411
  Serious: Yes (Hospitalization, Other)
  Sender: FDA-Public Use
  Company Number: US-AMGEN-KDL443371

PATIENT
  Sex: Female

DRUGS (2)
  1. ENBREL [Suspect]
     Indication: PSORIASIS
     Dates: start: 20050101, end: 20060101
  2. PRENATAL VITAMINS [Concomitant]

REACTIONS (4)
  - BREECH PRESENTATION [None]
  - NASOPHARYNGITIS [None]
  - PNEUMONIA [None]
  - PSORIASIS [None]
